FAERS Safety Report 8581400-5 (Version None)
Quarter: 2012Q3

REPORT INFORMATION
  Report Type: 
  Country: None (occurrence: None)
  Receive Date: 20120809
  Receipt Date: 20120801
  Transmission Date: 20120928
  Serious: Yes (Hospitalization)
  Sender: FDA-Public Use
  Company Number: FR-SANOFI-AVENTIS-2012SA054826

PATIENT
  Age: 59 Year
  Sex: Female

DRUGS (9)
  1. ATORVASTATIN [Concomitant]
     Dates: end: 20120630
  2. ATACAND [Concomitant]
     Dates: end: 20120630
  3. TARGOCID [Concomitant]
     Dates: start: 20120628, end: 20120712
  4. AMOXICILLIN [Suspect]
     Dosage: FREQUENCY: 6 TIMES A DAY
     Route: 042
     Dates: start: 20120617, end: 20120628
  5. ACETAMINOPHEN [Concomitant]
     Dates: start: 20120605
  6. CALCIPARINE [Suspect]
     Indication: THROMBOSIS PROPHYLAXIS
     Route: 058
     Dates: start: 20120701, end: 20120710
  7. ROCEPHIN [Concomitant]
     Dates: start: 20120606, end: 20120616
  8. LOVENOX [Suspect]
     Indication: THROMBOSIS PROPHYLAXIS
     Route: 058
     Dates: start: 20120607, end: 20120630
  9. TRAMADOL HCL [Concomitant]
     Dates: start: 20120605

REACTIONS (4)
  - PYREXIA [None]
  - RASH [None]
  - EOSINOPHILIA [None]
  - CHOLESTASIS [None]
